FAERS Safety Report 14411049 (Version 3)
Quarter: 2018Q3

REPORT INFORMATION
  Report Type: Spontaneous
  Country: US (occurrence: US)
  Receive Date: 20180119
  Receipt Date: 20180723
  Transmission Date: 20181010
  Serious: Yes (Hospitalization)
  Sender: FDA-Public Use
  Company Number: US-JNJFOC-20171118221

PATIENT
  Age: 55 Year
  Sex: Male

DRUGS (2)
  1. NORCO [Concomitant]
     Active Substance: ACETAMINOPHEN\HYDROCODONE BITARTRATE
     Indication: PAIN
     Dosage: 7.5/3.25
     Route: 065
     Dates: start: 1999
  2. INVOKANA [Suspect]
     Active Substance: CANAGLIFLOZIN
     Indication: TYPE 2 DIABETES MELLITUS
     Route: 048
     Dates: start: 201510, end: 20170525

REACTIONS (9)
  - Septic shock [Recovered/Resolved]
  - Toe amputation [Unknown]
  - Cellulitis [Recovering/Resolving]
  - Foot amputation [Unknown]
  - Osteomyelitis [Recovering/Resolving]
  - Skin ulcer [Unknown]
  - Foot deformity [Unknown]
  - Acute kidney injury [Recovered/Resolved]
  - Depression [Unknown]

NARRATIVE: CASE EVENT DATE: 20170106
